FAERS Safety Report 10224356 (Version 2)
Quarter: 2014Q2

REPORT INFORMATION
  Report Type: Spontaneous
  Country: US (occurrence: US)
  Receive Date: 20140609
  Receipt Date: 20140609
  Transmission Date: 20141212
  Serious: Yes (Other)
  Sender: FDA-Public Use
  Company Number: US-SANOFI-AVENTIS-2011SA044672

PATIENT
  Age: 69 Year
  Sex: Female

DRUGS (4)
  1. MULTAQ [Suspect]
     Indication: ATRIAL FIBRILLATION
     Route: 048
     Dates: start: 201001
  2. MULTAQ [Suspect]
     Indication: ATRIAL FIBRILLATION
     Route: 048
     Dates: start: 201001
  3. COUMADIN [Suspect]
     Indication: PRODUCT USED FOR UNKNOWN INDICATION
     Route: 065
  4. BAYER CHILDREN^S ASPIRIN [Concomitant]

REACTIONS (5)
  - Hypothyroidism [Recovered/Resolved]
  - International normalised ratio abnormal [Not Recovered/Not Resolved]
  - Heart rate increased [Unknown]
  - Sluggishness [Unknown]
  - Feeling abnormal [Unknown]
